FAERS Safety Report 8001839-6 (Version None)
Quarter: 2011Q4

REPORT INFORMATION
  Report Type: 
  Country: None (occurrence: None)
  Receive Date: 20111222
  Receipt Date: 20111215
  Transmission Date: 20120403
  Serious: Yes (Other)
  Sender: FDA-Public Use
  Company Number: FR-ROCHE-1023037

PATIENT
  Sex: Female

DRUGS (7)
  1. KETOPROFEN [Concomitant]
  2. METHYLPREDNISONE (UNK INGREDIENTS) [Concomitant]
  3. METHOTREXATE [Concomitant]
  4. ALENDRONATE SODIUM [Concomitant]
  5. ACTEMRA [Suspect]
     Indication: PRODUCT USED FOR UNKNOWN INDICATION
     Route: 042
     Dates: start: 20100929, end: 20110217
  6. LEVOTHYROXINE SODIUM [Concomitant]
  7. PANTOPRAZOLE [Concomitant]

REACTIONS (1)
  - MYELOCYTOSIS [None]
